FAERS Safety Report 25276482 (Version 1)
Quarter: 2025Q2

REPORT INFORMATION
  Report Type: Spontaneous
  Country: US (occurrence: US)
  Receive Date: 20250507
  Receipt Date: 20250507
  Transmission Date: 20250717
  Serious: Yes (Hospitalization)
  Sender: Unknown Manufacturer
  Company Number: US-MLMSERVICE-20250331-PI462084-00123-1

PATIENT
  Age: 43 Year
  Sex: Female

DRUGS (12)
  1. DOCETAXEL [Suspect]
     Active Substance: DOCETAXEL
     Indication: HER2 positive breast cancer
  2. DOCETAXEL [Suspect]
     Active Substance: DOCETAXEL
     Indication: Breast cancer stage III
  3. CARBOPLATIN [Interacting]
     Active Substance: CARBOPLATIN
     Indication: HER2 positive breast cancer
     Dosage: AREA UNDER THE CURVE (AUC) OF 6
  4. CARBOPLATIN [Interacting]
     Active Substance: CARBOPLATIN
     Indication: Breast cancer stage III
  5. TRASTUZUMAB [Interacting]
     Active Substance: TRASTUZUMAB
     Indication: HER2 positive breast cancer
     Dosage: LOADING DOSE
  6. TRASTUZUMAB [Interacting]
     Active Substance: TRASTUZUMAB
     Indication: Breast cancer stage III
  7. PERTUZUMAB [Interacting]
     Active Substance: PERTUZUMAB
     Indication: HER2 positive breast cancer
     Dosage: LOADING DOSE
  8. PERTUZUMAB [Interacting]
     Active Substance: PERTUZUMAB
     Indication: Breast cancer stage III
  9. APREPITANT [Concomitant]
     Active Substance: APREPITANT
     Indication: Premedication
  10. DEXAMETHASONE [Concomitant]
     Active Substance: DEXAMETHASONE
     Indication: Premedication
  11. PALONSETRON [Concomitant]
     Indication: Premedication
  12. PEGFILGRASTIM [Concomitant]
     Active Substance: PEGFILGRASTIM
     Indication: Prophylaxis

REACTIONS (2)
  - Cystitis haemorrhagic [Recovered/Resolved]
  - Drug interaction [Recovered/Resolved]
